FAERS Safety Report 12956458 (Version 3)
Quarter: 2017Q1

REPORT INFORMATION
  Report Type: Report from Study
  Country: HU (occurrence: HU)
  Receive Date: 20161119
  Receipt Date: 20170114
  Transmission Date: 20170428
  Serious: Yes (Death, Hospitalization)
  Sender: FDA-Public Use
  Company Number: HU-AMGEN-HUNCT2016115897

PATIENT
  Age: 75 Year
  Sex: Female

DRUGS (11)
  1. TENSIOMIN [Concomitant]
     Active Substance: CAPTOPRIL
     Dosage: 12.5 MG, UNK
     Route: 048
     Dates: start: 2005, end: 20161003
  2. BRETARIS GENUAIR [Concomitant]
     Active Substance: ACLIDINIUM BROMIDE
     Dosage: 322 MCG, UNK
     Route: 007
     Dates: start: 2010, end: 20161003
  3. LIBEXIN [Concomitant]
     Active Substance: PRENOXDIAZINE HYDROCHLORIDE
     Dosage: 100 MG, UNK
     Route: 048
     Dates: start: 20160518
  4. SUMETROLIM [Concomitant]
     Dosage: 480 MG, UNK
     Route: 048
     Dates: start: 20160519
  5. HERPESIN [Concomitant]
     Dosage: 400 MG, UNK
     Route: 048
     Dates: start: 20160328, end: 20161003
  6. FRONTIN [Concomitant]
     Active Substance: ALPRAZOLAM
     Dosage: 0.5 MG, UNK
     Route: 048
     Dates: start: 2010, end: 20161003
  7. CARFILZOMIB [Suspect]
     Active Substance: CARFILZOMIB
     Indication: PLASMA CELL MYELOMA
     Dosage: 54 MG, PER CHEMO REGIM
     Route: 042
     Dates: start: 20160329, end: 20160831
  8. DEXAMETHASONE. [Suspect]
     Active Substance: DEXAMETHASONE
     Indication: PLASMA CELL MYELOMA
     Dosage: 40 MG, PER CHEMO REGIM
     Route: 048
     Dates: start: 20160329, end: 20160906
  9. ROCEPHIN [Concomitant]
     Active Substance: CEFTRIAXONE SODIUM
     Dosage: 2 G, UNK
     Route: 042
     Dates: start: 20160518, end: 20160912
  10. LERCATON [Concomitant]
     Dosage: 10 MG, UNK
     Route: 048
     Dates: start: 2005, end: 20161003
  11. PANTOPRAZOLE [Concomitant]
     Active Substance: PANTOPRAZOLE SODIUM
     Dosage: 40 MG, UNK
     Route: 048
     Dates: start: 20160328, end: 20161003

REACTIONS (1)
  - Pyelonephritis acute [Fatal]

NARRATIVE: CASE EVENT DATE: 20160830
